FAERS Safety Report 18556467 (Version 1)
Quarter: 2020Q4

REPORT INFORMATION
  Report Type: Spontaneous
  Country: US (occurrence: US)
  Receive Date: 20201128
  Receipt Date: 20201128
  Transmission Date: 20210114
  Serious: Yes (Hospitalization)
  Sender: FDA-Public Use
  Company Number: NVSC2020US311201

PATIENT
  Age: 13 Year
  Sex: Female
  Weight: 76 kg

DRUGS (1)
  1. ILARIS [Suspect]
     Active Substance: CANAKINUMAB
     Indication: JUVENILE IDIOPATHIC ARTHRITIS
     Dosage: 300 MG, Q4W
     Route: 058
     Dates: start: 20201021, end: 20201118

REACTIONS (3)
  - Infection [Unknown]
  - Product use in unapproved indication [Unknown]
  - Pain in extremity [Unknown]

NARRATIVE: CASE EVENT DATE: 20201023
